FAERS Safety Report 5639633-3 (Version None)
Quarter: 2008Q1

REPORT INFORMATION
  Report Type: 
  Country: None (occurrence: None)
  Receive Date: 20080222
  Receipt Date: 20080213
  Transmission Date: 20080703
  Serious: Yes (Hospitalization)
  Sender: FDA-Public Use
  Company Number: SPV1-2008-00305

PATIENT
  Age: 5 Year
  Sex: Male
  Weight: 29.5 kg

DRUGS (2)
  1. VYVANSE [Suspect]
     Indication: ATTENTION DEFICIT/HYPERACTIVITY DISORDER
     Dosage: 30 MG, 1X/DAY: QD, ORAL
     Route: 048
     Dates: start: 20080208, end: 20080208
  2. DEPAKOTE [Concomitant]

REACTIONS (3)
  - DYSTONIA [None]
  - EXTRAPYRAMIDAL DISORDER [None]
  - OFF LABEL USE [None]
